FAERS Safety Report 5568875-0 (Version None)
Quarter: 2007Q4

REPORT INFORMATION
  Report Type: 
  Country: None (occurrence: None)
  Receive Date: 20071220
  Receipt Date: 20070425
  Transmission Date: 20080405
  Serious: No
  Sender: FDA-Public Use
  Company Number: A0640582A

PATIENT
  Age: 77 Year
  Sex: Male

DRUGS (10)
  1. AVODART [Suspect]
     Indication: BENIGN PROSTATIC HYPERPLASIA
     Dosage: .5MG PER DAY
     Route: 048
     Dates: start: 20040101
  2. CIFLOX (CIPROFLOXACINE) [Suspect]
     Indication: URINARY TRACT INFECTION
     Dosage: 500MG TWICE PER DAY
     Route: 048
     Dates: start: 20070208
  3. CARDURA [Concomitant]
  4. VASOTEC [Concomitant]
  5. PEPCID [Concomitant]
  6. LASIX [Concomitant]
  7. IMDUR [Concomitant]
  8. LOPRESSOR [Concomitant]
  9. POTASSIUM CHLORIDE [Concomitant]
  10. COUMADIN [Concomitant]

REACTIONS (5)
  - ASTHENIA [None]
  - DRUG INTERACTION [None]
  - MUSCULOSKELETAL PAIN [None]
  - MUSCULOSKELETAL STIFFNESS [None]
  - SOMNOLENCE [None]
